FAERS Safety Report 14614040 (Version 1)
Quarter: 2018Q1

REPORT INFORMATION
  Report Type: Spontaneous
  Country: RU (occurrence: RU)
  Receive Date: 20180308
  Receipt Date: 20180308
  Transmission Date: 20180509
  Serious: Yes (Other)
  Sender: FDA-Public Use
  Company Number: RU-TEVA-2018-RU-865968

PATIENT
  Age: 38 Year
  Sex: Female

DRUGS (1)
  1. FINLEPSIN RETERD [Suspect]
     Active Substance: CARBAMAZEPINE
     Indication: EPILEPSY
     Dosage: 800 MILLIGRAM DAILY;
     Route: 048

REACTIONS (2)
  - Suspected counterfeit product [Unknown]
  - Epilepsy [Recovered/Resolved]
